FAERS Safety Report 12455719 (Version 1)
Quarter: 2016Q2

REPORT INFORMATION
  Report Type: Spontaneous
  Country: CN (occurrence: CN)
  Receive Date: 20160610
  Receipt Date: 20160610
  Transmission Date: 20160815
  Serious: Yes (Death)
  Sender: FDA-Public Use
  Company Number: CN-PFIZER INC-2016285688

PATIENT
  Age: 68 Year
  Sex: Female

DRUGS (1)
  1. XALKORI [Suspect]
     Active Substance: CRIZOTINIB
     Indication: LUNG NEOPLASM MALIGNANT
     Dosage: 2 CAPSULES PER DAY (250 MG X 60 CAPSULE PER BOTTLE)

REACTIONS (3)
  - Cardiopulmonary failure [Fatal]
  - Lung neoplasm malignant [Fatal]
  - Disease progression [Fatal]
